FAERS Safety Report 23642615 (Version 1)
Quarter: 2024Q1

REPORT INFORMATION
  Report Type: Spontaneous
  Country: JP (occurrence: JP)
  Receive Date: 20240318
  Receipt Date: 20240318
  Transmission Date: 20240410
  Serious: Yes (Hospitalization)
  Sender: FDA-Public Use
  Company Number: JP-DSJP-DSJ-2022-126044

PATIENT
  Age: 69 Year
  Sex: Male
  Weight: 59 kg

DRUGS (24)
  1. ENHERTU [Suspect]
     Active Substance: FAM-TRASTUZUMAB DERUXTECAN-NXKI
     Indication: HER2 positive gastric cancer
     Dosage: 5.4 MG/KG, ONCE EVERY 3 WK
     Route: 041
     Dates: start: 20220720, end: 20220720
  2. ENHERTU [Suspect]
     Active Substance: FAM-TRASTUZUMAB DERUXTECAN-NXKI
     Dosage: 5.4 MG/KG, ONCE EVERY 3 WK
     Route: 041
     Dates: start: 20220817, end: 20220817
  3. ENHERTU [Suspect]
     Active Substance: FAM-TRASTUZUMAB DERUXTECAN-NXKI
     Dosage: 5.4 MG/KG, ONCE EVERY 4 WK
     Route: 041
     Dates: start: 20220914, end: 20220914
  4. ENHERTU [Suspect]
     Active Substance: FAM-TRASTUZUMAB DERUXTECAN-NXKI
     Dosage: 5.4 MG/KG, ONCE EVERY 4 WK
     Route: 041
     Dates: start: 20221019, end: 20221019
  5. ENHERTU [Suspect]
     Active Substance: FAM-TRASTUZUMAB DERUXTECAN-NXKI
     Dosage: 5.4 MG/KG, ONCE EVERY 4 WK
     Route: 041
     Dates: start: 20221116, end: 20221116
  6. ENHERTU [Suspect]
     Active Substance: FAM-TRASTUZUMAB DERUXTECAN-NXKI
     Dosage: 5.4 MG/KG, ONCE EVERY 4 WK
     Route: 041
     Dates: start: 20221214, end: 20221214
  7. ENHERTU [Suspect]
     Active Substance: FAM-TRASTUZUMAB DERUXTECAN-NXKI
     Dosage: 5.4 MG/KG, ONCE EVERY 4 WK
     Route: 041
     Dates: start: 20230111, end: 20230111
  8. ENHERTU [Suspect]
     Active Substance: FAM-TRASTUZUMAB DERUXTECAN-NXKI
     Dosage: 5.4 MG/KG, ONCE EVERY 4 WK
     Route: 041
     Dates: start: 20230208, end: 20230208
  9. ENHERTU [Suspect]
     Active Substance: FAM-TRASTUZUMAB DERUXTECAN-NXKI
     Dosage: 5.4 MG/KG, ONCE EVERY 4 WK
     Route: 041
     Dates: start: 20230308, end: 20230308
  10. ENHERTU [Suspect]
     Active Substance: FAM-TRASTUZUMAB DERUXTECAN-NXKI
     Dosage: 5.4 MG/KG, ONCE EVERY 4 WK
     Route: 041
     Dates: start: 20230405, end: 20230405
  11. ENHERTU [Suspect]
     Active Substance: FAM-TRASTUZUMAB DERUXTECAN-NXKI
     Dosage: 5.4 MG/KG, ONCE EVERY 4 WK
     Route: 041
     Dates: start: 20230510, end: 20230510
  12. ENHERTU [Suspect]
     Active Substance: FAM-TRASTUZUMAB DERUXTECAN-NXKI
     Dosage: 5.4 MG/KG, ONCE EVERY 4 WK
     Route: 041
     Dates: start: 20230607, end: 20230607
  13. ENHERTU [Suspect]
     Active Substance: FAM-TRASTUZUMAB DERUXTECAN-NXKI
     Dosage: 5.4 MG/KG, ONCE EVERY 4 WK
     Route: 041
     Dates: start: 20230712, end: 20230712
  14. ENHERTU [Suspect]
     Active Substance: FAM-TRASTUZUMAB DERUXTECAN-NXKI
     Dosage: 5.4 MG/KG, ONCE EVERY 4 WK
     Route: 041
     Dates: start: 20230809, end: 20230809
  15. ENHERTU [Suspect]
     Active Substance: FAM-TRASTUZUMAB DERUXTECAN-NXKI
     Dosage: 5.4 MG/KG, ONCE EVERY 4 WK
     Route: 041
     Dates: start: 20230906, end: 20230906
  16. ENHERTU [Suspect]
     Active Substance: FAM-TRASTUZUMAB DERUXTECAN-NXKI
     Dosage: 4.4 MG/KG, ONCE EVERY 4 WK
     Route: 041
     Dates: start: 20231011, end: 20231011
  17. ENHERTU [Suspect]
     Active Substance: FAM-TRASTUZUMAB DERUXTECAN-NXKI
     Dosage: 4.4 MG/KG, ONCE EVERY 4 WK
     Route: 041
     Dates: start: 20231108, end: 20231108
  18. ENHERTU [Suspect]
     Active Substance: FAM-TRASTUZUMAB DERUXTECAN-NXKI
     Dosage: 4.4 MG/KG, ONCE EVERY 4 WK
     Route: 041
     Dates: start: 20231206, end: 20231206
  19. EDOXABAN TOSYLATE [Concomitant]
     Active Substance: EDOXABAN TOSYLATE
     Indication: Coronary arterial stent insertion
     Dosage: 30 MG, QD
     Route: 048
     Dates: start: 20220720
  20. APREPITANT [Concomitant]
     Active Substance: APREPITANT
     Indication: Prophylaxis of nausea and vomiting
     Dosage: 125 MG, QD
     Route: 048
     Dates: start: 20220720, end: 20230712
  21. PANCRELIPASE [Concomitant]
     Active Substance: PANCRELIPASE
     Indication: Dyspepsia
     Dosage: 1 TABLET, TID
     Route: 048
     Dates: start: 20220720, end: 20221007
  22. NAUZELIN [Concomitant]
     Active Substance: DOMPERIDONE
     Indication: Prophylaxis of nausea and vomiting
     Dosage: 10 MG, TID
     Route: 048
     Dates: start: 20220824, end: 20221019
  23. TAGAMET [Concomitant]
     Active Substance: CIMETIDINE
     Indication: Dyspepsia
     Dosage: 400 MG, BID
     Route: 048
     Dates: start: 20231011, end: 20231206
  24. IOPAMIDOL [Concomitant]
     Active Substance: IOPAMIDOL
     Indication: Product used for unknown indication
     Dosage: UNK
     Route: 065

REACTIONS (8)
  - Interstitial lung disease [Recovered/Resolved]
  - COVID-19 [Recovered/Resolved]
  - Nausea [Unknown]
  - Nausea [Unknown]
  - Malaise [Recovered/Resolved]
  - Weight decreased [Recovered/Resolved]
  - Fatigue [Recovered/Resolved]
  - Underdose [Unknown]

NARRATIVE: CASE EVENT DATE: 20220720
